FAERS Safety Report 23713255 (Version 1)
Quarter: 2024Q2

REPORT INFORMATION
  Report Type: Spontaneous
  Country: US (occurrence: US)
  Receive Date: 20240405
  Receipt Date: 20240405
  Transmission Date: 20240716
  Serious: Yes (Other)
  Sender: FDA-Public Use
  Company Number: US-PURDUE PHARMA-USA-2024-0308796

PATIENT

DRUGS (2)
  1. OXYCODONE HYDROCHLORIDE [Suspect]
     Active Substance: OXYCODONE HYDROCHLORIDE
     Indication: Pain
     Dosage: 10 MILLIGRAM
     Route: 048
     Dates: start: 202309
  2. OXYCODONE HYDROCHLORIDE [Suspect]
     Active Substance: OXYCODONE HYDROCHLORIDE
     Dosage: 10 MILLIGRAM
     Route: 048
     Dates: start: 202401

REACTIONS (16)
  - Jaw fracture [Unknown]
  - Loss of consciousness [Unknown]
  - Eye contusion [Unknown]
  - Gastritis [Unknown]
  - Gastrointestinal tract irritation [Unknown]
  - Lip injury [Unknown]
  - Upper-airway cough syndrome [Unknown]
  - Sedation [Unknown]
  - Sinus congestion [Unknown]
  - Tooth avulsion [Unknown]
  - Nausea [Unknown]
  - Pruritus [Unknown]
  - Headache [Unknown]
  - Vomiting [Unknown]
  - Anxiety [Unknown]
  - Product substitution issue [Unknown]
